FAERS Safety Report 20881603 (Version 2)
Quarter: 2022Q2

REPORT INFORMATION
  Report Type: Spontaneous
  Country: CA (occurrence: CA)
  Receive Date: 20220527
  Receipt Date: 20220610
  Transmission Date: 20220721
  Serious: Yes (Other)
  Sender: FDA-Public Use
  Company Number: CA-CELLTRION INC.-2022CA007493

PATIENT

DRUGS (2)
  1. INFLIXIMAB [Suspect]
     Active Substance: INFLIXIMAB
     Indication: Rheumatoid arthritis
     Dosage: WEEKLY INJECTIONS
     Route: 058
     Dates: start: 20211216
  2. INFLIXIMAB [Suspect]
     Active Substance: INFLIXIMAB
     Dosage: WEEKLY INJECTIONS
     Route: 058
     Dates: start: 20220519

REACTIONS (4)
  - Pain in extremity [Unknown]
  - Skin warm [Unknown]
  - Peripheral swelling [Unknown]
  - Off label use [Unknown]
